FAERS Safety Report 10198828 (Version 1)
Quarter: 2014Q2

REPORT INFORMATION
  Report Type: Spontaneous
  Country: US (occurrence: None)
  Receive Date: 20140523
  Receipt Date: 20140523
  Transmission Date: 20141212
  Serious: No
  Sender: FDA-Public Use
  Company Number: None

PATIENT
  Age: 56 Year
  Sex: Female
  Weight: 66.23 kg

DRUGS (1)
  1. SYNTHROID [Suspect]
     Indication: THYROID DISORDER
     Route: 048

REACTIONS (6)
  - Abdominal discomfort [None]
  - Dysphagia [None]
  - Sensation of foreign body [None]
  - Malaise [None]
  - Heart rate irregular [None]
  - Blood thyroid stimulating hormone increased [None]
